FAERS Safety Report 8185186-8 (Version None)
Quarter: 2012Q1

REPORT INFORMATION
  Report Type: 
  Country: None (occurrence: None)
  Receive Date: 20120305
  Receipt Date: 20120220
  Transmission Date: 20120608
  Serious: Yes (Other)
  Sender: FDA-Public Use
  Company Number: PHHY2012US017089

PATIENT
  Age: 80 Year
  Sex: Male

DRUGS (1)
  1. AREDIA [Suspect]
     Indication: PROSTATE CANCER
     Dosage: UNK
     Route: 042

REACTIONS (3)
  - PAIN IN EXTREMITY [None]
  - FEMUR FRACTURE [None]
  - STRESS FRACTURE [None]
